FAERS Safety Report 23029066 (Version 1)
Quarter: 2023Q4

REPORT INFORMATION
  Report Type: Spontaneous
  Country: CA (occurrence: CA)
  Receive Date: 20231004
  Receipt Date: 20231004
  Transmission Date: 20240109
  Serious: Yes (Life-Threatening, Hospitalization)
  Sender: FDA-Public Use
  Company Number: CA-002147023-NVSC2023CA212601

PATIENT
  Age: 10 Year
  Sex: Female

DRUGS (18)
  1. FLOVENT [Suspect]
     Active Substance: FLUTICASONE PROPIONATE
     Indication: Chronic graft versus host disease
     Dosage: UNK
     Route: 065
  2. FLOVENT [Suspect]
     Active Substance: FLUTICASONE PROPIONATE
     Indication: Acute myeloid leukaemia
  3. FLOVENT [Suspect]
     Active Substance: FLUTICASONE PROPIONATE
     Indication: Allogenic stem cell transplantation
  4. METHYLPREDNISOLONE [Suspect]
     Active Substance: METHYLPREDNISOLONE
     Indication: Allogenic stem cell transplantation
     Dosage: 30 MG/KG
     Route: 065
  5. METHYLPREDNISOLONE [Suspect]
     Active Substance: METHYLPREDNISOLONE
     Indication: Acute myeloid leukaemia
  6. METHYLPREDNISOLONE [Suspect]
     Active Substance: METHYLPREDNISOLONE
     Indication: Chronic graft versus host disease
  7. ONDANSETRON [Suspect]
     Active Substance: ONDANSETRON
     Indication: Allogenic stem cell transplantation
     Dosage: UNK
     Route: 065
  8. ONDANSETRON [Suspect]
     Active Substance: ONDANSETRON
     Indication: Acute myeloid leukaemia
  9. ONDANSETRON [Suspect]
     Active Substance: ONDANSETRON
     Indication: Chronic graft versus host disease
  10. PANTOPRAZOLE [Suspect]
     Active Substance: PANTOPRAZOLE
     Indication: Chronic graft versus host disease
     Dosage: UNK
     Route: 065
  11. QUETIAPINE [Suspect]
     Active Substance: QUETIAPINE
     Indication: Allogenic stem cell transplantation
     Dosage: UNK
     Route: 065
  12. TYLENOL [Suspect]
     Active Substance: ACETAMINOPHEN
     Indication: Chronic graft versus host disease
     Dosage: UNK, PRN (AS NEEDED)
     Route: 065
  13. TYLENOL [Suspect]
     Active Substance: ACETAMINOPHEN
     Indication: Acute myeloid leukaemia
  14. TYLENOL [Suspect]
     Active Substance: ACETAMINOPHEN
     Indication: Allogenic stem cell transplantation
  15. URSODIOL [Suspect]
     Active Substance: URSODIOL
     Indication: Chronic graft versus host disease
     Dosage: UNK
     Route: 065
  16. URSODIOL [Suspect]
     Active Substance: URSODIOL
     Indication: Acute myeloid leukaemia
  17. URSODIOL [Suspect]
     Active Substance: URSODIOL
     Indication: Allogenic stem cell transplantation
  18. CASPOFUNGIN [Concomitant]
     Active Substance: CASPOFUNGIN
     Indication: Product used for unknown indication
     Dosage: 50 MG, QD (CYP3A4 INHIBITOR)
     Route: 041

REACTIONS (4)
  - Graft versus host disease in liver [Unknown]
  - Graft versus host disease in lung [Unknown]
  - Activated partial thromboplastin time prolonged [Unknown]
  - Drug ineffective [Unknown]
